FAERS Safety Report 5718149-X (Version None)
Quarter: 2008Q2

REPORT INFORMATION
  Report Type: 
  Country: None (occurrence: None)
  Receive Date: 20080425
  Receipt Date: 20080422
  Transmission Date: 20081010
  Serious: Yes (Hospitalization, Other)
  Sender: FDA-Public Use
  Company Number: BE-ASTRAZENECA-2008AC00783

PATIENT
  Age: 16218 Day
  Sex: Female

DRUGS (1)
  1. NEXIUM [Suspect]
     Indication: GASTRIC ULCER
     Route: 048
     Dates: start: 20080306, end: 20080313

REACTIONS (1)
  - PANCYTOPENIA [None]
